FAERS Safety Report 17339602 (Version 1)
Quarter: 2020Q1

REPORT INFORMATION
  Report Type: Report from Study
  Country: US (occurrence: US)
  Receive Date: 20200129
  Receipt Date: 20200129
  Transmission Date: 20200409
  Serious: Yes (Other)
  Sender: FDA-Public Use
  Company Number: US-AMGEN-USACT2020012999

PATIENT
  Age: 5 Year
  Sex: Male
  Weight: 16.4 kg

DRUGS (24)
  1. METHOTREXATE. [Suspect]
     Active Substance: METHOTREXATE
     Dosage: 20 MILLIGRAM/SQ. METER, ON DAYS 8, 15, 29, 36 (CYCLE 56 DAYS)
     Route: 048
  2. VINCRISTINE [Suspect]
     Active Substance: VINCRISTINE
     Dosage: 1.5 MILLIGRAM/SQ. METER ON DAYS 1, 29, 57 (CYCLE 2+, CYCLE OF 84 DAYS, REPEAT UNTILL 2 YEARS)
     Route: 042
  3. THIOGUANINE [Suspect]
     Active Substance: THIOGUANINE
     Indication: B PRECURSOR TYPE ACUTE LEUKAEMIA
     Dosage: 40 MILLIGRAM/SQ. METER, QD ON DAYS 43-49
     Route: 048
  4. CYTARABINE. [Suspect]
     Active Substance: CYTARABINE
     Indication: B PRECURSOR TYPE ACUTE LEUKAEMIA
     Dosage: 50 MILLIGRAM/SQ. METER, IV OVER 1-30 MINUTES OR SQ ON DAYS 44-47, 51-54
     Route: 065
  5. BLINATUMOMAB [Suspect]
     Active Substance: BLINATUMOMAB
     Indication: B PRECURSOR TYPE ACUTE LEUKAEMIA
     Dosage: 15 MICROGRAM/SQ. METER, QD ON DAYS 1-28 (CYCLE 1 OF 35 DAYS)
     Route: 042
  6. VINCRISTINE [Suspect]
     Active Substance: VINCRISTINE
     Indication: B PRECURSOR TYPE ACUTE LEUKAEMIA
     Dosage: 1.5 MILLIGRAM/SQ. METER ON DAY 1 (CYCLE 28 DAYS)
     Route: 042
  7. METHOTREXATE. [Suspect]
     Active Substance: METHOTREXATE
     Indication: B PRECURSOR TYPE ACUTE LEUKAEMIA
     Dosage: 1000 MILLIGRAM/SQ. METER, OVER 36 HRS ON DAY 8 (CYCLE 28 DAYS)
     Route: 042
  8. MERCAPTOPURINE. [Suspect]
     Active Substance: MERCAPTOPURINE
     Indication: B PRECURSOR TYPE ACUTE LEUKAEMIA
     Dosage: 75 MILLIGRAM/SQ. METER, ON DAYS 1-42 (CYCLE 56 DAYS)
     Route: 048
  9. DEXAMETHASONE. [Suspect]
     Active Substance: DEXAMETHASONE
     Dosage: 5 MILLIGRAM/SQ. METER, BID ON DAYS 1-7, 15-21 (CYCLE OF 21 DAYS)
     Route: 065
  10. METHOTREXATE. [Suspect]
     Active Substance: METHOTREXATE
     Dosage: 20 MILLIGRAM/SQ. METER, ON DAYS 1, 8, 15, 22, 29, 36, 43, 50, 57, 64, 71, 78 (CYCLE 2+, CYCLE OF 84
     Route: 048
  11. ETOPOSIDE. [Suspect]
     Active Substance: ETOPOSIDE
     Dosage: 100 MILLIGRAM/SQ. METER, OVER 1-2 HRS ON DAYS 43, 50
     Route: 042
  12. MERCAPTOPURINE. [Suspect]
     Active Substance: MERCAPTOPURINE
     Dosage: 75 MILLIGRAM/SQ. METER, ON DAYS 1 - 84(CYCLE 2+, CYCLE OF 84 DAYS, REPEAT UNTILL 2 YEARS)
     Route: 048
  13. BLINATUMOMAB [Suspect]
     Active Substance: BLINATUMOMAB
     Dosage: 15 MICROGRAM/SQ. METER, QD ON DAYS 1-28 (CYCLE 2 AND 3 OF 35 DAYS)
     Route: 042
     Dates: start: 20200114
  14. DEXAMETHASONE. [Suspect]
     Active Substance: DEXAMETHASONE
     Dosage: 3 MILLIGRAM/SQ. METER, BID ON DAYS 1-5, 29-33, + 57-61 (CYCLE 2+, CYCLE OF 84 DAYS, REPEAT UNTILL 2
     Route: 065
  15. BLINATUMOMAB [Suspect]
     Active Substance: BLINATUMOMAB
     Dosage: 15 MICROGRAM/SQ. METER, QD ON DAYS 1-28 (CYCLE 2 AND 3 OF 35 DAYS)
     Route: 042
  16. VINCRISTINE [Suspect]
     Active Substance: VINCRISTINE
     Dosage: 1.5 MILLIGRAM/SQ. METER ON DAYS 1, 8, 15 (CYCLE OF 21 DAYS)
     Route: 042
  17. CYCLOPHOSPHAMIDE. [Suspect]
     Active Substance: CYCLOPHOSPHAMIDE
     Dosage: 300 MILLIGRAM/SQ. METER, OVER 15-30 MIN ON DAYS 43, 50
     Route: 042
  18. DEXAMETHASONE. [Suspect]
     Active Substance: DEXAMETHASONE
     Dosage: 3 MILLIGRAM/SQ. METER, BID ON DAYS 1-5 (CYCLE 56 DAYS)
     Route: 065
  19. VINCRISTINE [Suspect]
     Active Substance: VINCRISTINE
     Dosage: 1.5 MILLIGRAM/SQ. METER ON DAY 1 (CYCLE 56 DAYS)
     Route: 042
  20. PEGASPARGASE [Suspect]
     Active Substance: PEGASPARGASE
     Indication: B PRECURSOR TYPE ACUTE LEUKAEMIA
     Dosage: 2500 INTERNATIONAL UNIT/SQ.METER, OVER 1-2 HRS ON DAY 9 OR 10
     Route: 042
  21. PEGASPARGASE [Suspect]
     Active Substance: PEGASPARGASE
     Dosage: 2500 INTERNATIONAL UNIT/SQ.METER, OVER 1-2 HRS ON DAY 1 (CYCLE OF 21 DAYS)
     Route: 042
  22. ETOPOSIDE. [Suspect]
     Active Substance: ETOPOSIDE
     Indication: B PRECURSOR TYPE ACUTE LEUKAEMIA
     Dosage: 100 MILLIGRAM/SQ. METER, OVER 1-2 HRS ON DAYS 15-19
     Route: 042
  23. DEXAMETHASONE. [Suspect]
     Active Substance: DEXAMETHASONE
     Indication: B PRECURSOR TYPE ACUTE LEUKAEMIA
     Dosage: 3 MILLIGRAM/SQ. METER, BID ON DAYS 1-5  (BLOCK 2 CYCLE 28 DAYS)
     Route: 065
  24. CYCLOPHOSPHAMIDE. [Suspect]
     Active Substance: CYCLOPHOSPHAMIDE
     Indication: B PRECURSOR TYPE ACUTE LEUKAEMIA
     Dosage: 440 MILLIGRAM/SQ. METER, OVER 15-30 MIN ON DAYS 15-19
     Route: 042

REACTIONS (1)
  - Hypokalaemia [Unknown]

NARRATIVE: CASE EVENT DATE: 20200119
